FAERS Safety Report 8757441 (Version 1)
Quarter: 2012Q4

REPORT INFORMATION
  Report Type: 
  Country: BR (occurrence: BR)
  Receive Date: 20120828
  Receipt Date: 20120828
  Transmission Date: 20130627
  Serious: Yes (Other)
  Sender: FDA-Public Use
  Company Number: PHHY2012BR073692

PATIENT
  Age: 30 Year
  Sex: Female

DRUGS (5)
  1. RITALINA [Suspect]
     Indication: ATTENTION DEFICIT/HYPERACTIVITY DISORDER
     Dosage: 10 mg, three tablets daily
     Dates: start: 2008
  2. RITALINA [Suspect]
     Dosage: 10 mg, four tablets daily
  3. RITALINA [Suspect]
     Dosage: 10 mg, six tablets daily
     Dates: start: 2010
  4. RITALIN LA [Suspect]
     Indication: ATTENTION DEFICIT/HYPERACTIVITY DISORDER
     Dosage: 20 mg, one or two tablets daily
  5. OMEPRAZOLE [Concomitant]
     Dosage: 20 mg, UNK

REACTIONS (10)
  - Epilepsy [Unknown]
  - Convulsion [Unknown]
  - Amnesia [Recovered/Resolved]
  - Head discomfort [Unknown]
  - Somnolence [Unknown]
  - Abdominal pain upper [Not Recovered/Not Resolved]
  - Vomiting [Unknown]
  - Nausea [Unknown]
  - Dizziness [Unknown]
  - Drug ineffective [Unknown]
